FAERS Safety Report 8958431 (Version 1)
Quarter: 2012Q4

REPORT INFORMATION
  Report Type: Spontaneous
  Country: US (occurrence: None)
  Receive Date: 20121205
  Receipt Date: 20121205
  Transmission Date: 20130627
  Serious: Yes (Other)
  Sender: FDA-Public Use
  Company Number: None

PATIENT
  Sex: Male
  Weight: 78.2 kg

DRUGS (4)
  1. LEVAQUIN 500MG UNKNOWN [Suspect]
     Indication: SINUSITIS
     Dosage: 500 mg once daily by mouth
     Route: 048
     Dates: start: 20121112, end: 20121114
  2. PLAVIX [Concomitant]
  3. ZETIA [Concomitant]
  4. ZANTAC [Concomitant]

REACTIONS (2)
  - Musculoskeletal pain [None]
  - Tendonitis [None]
